FAERS Safety Report 14313672 (Version 1)
Quarter: 2017Q4

REPORT INFORMATION
  Report Type: Report from Study
  Country: DE (occurrence: DE)
  Receive Date: 20171221
  Receipt Date: 20171221
  Transmission Date: 20180321
  Serious: Yes (Hospitalization, Other)
  Sender: FDA-Public Use
  Company Number: DE-ADIENNEP-2017AD000317

PATIENT
  Age: 8 Year
  Sex: Male
  Weight: 33 kg

DRUGS (4)
  1. TREOSULFAN MEDAC [Suspect]
     Active Substance: TREOSULFAN
     Indication: STEM CELL TRANSPLANT
     Dosage: 15.5 GRAM DAILY
     Route: 042
     Dates: start: 20160728, end: 20160730
  2. FLUDARABINE [Suspect]
     Active Substance: FLUDARABINE PHOSPHATE
     Indication: STEM CELL TRANSPLANT
     Dosage: 33 MILLIGRAM DAILY
     Route: 042
     Dates: start: 20160727, end: 20160731
  3. THIOTEPA. [Suspect]
     Active Substance: THIOTEPA
     Indication: STEM CELL TRANSPLANT
     Dosage: 350 MILLIGRAM DAILY
     Route: 042
     Dates: start: 20160801, end: 20160801
  4. FOSCARNET [Suspect]
     Active Substance: FOSCARNET
     Indication: CYTOMEGALOVIRUS INFECTION
     Route: 042
     Dates: start: 20160928, end: 20161114

REACTIONS (1)
  - Febrile neutropenia [Recovered/Resolved]

NARRATIVE: CASE EVENT DATE: 20161102
